FAERS Safety Report 11108889 (Version 1)
Quarter: 2015Q2

REPORT INFORMATION
  Report Type: Spontaneous
  Country: US (occurrence: None)
  Receive Date: 20150511
  Receipt Date: 20150511
  Transmission Date: 20150821
  Serious: Yes (Hospitalization)
  Sender: FDA-Public Use
  Company Number: 1601924

PATIENT
  Age: 47 Year
  Sex: Male

DRUGS (2)
  1. LACTULOSE (NON-SPECIFIC) [Suspect]
     Active Substance: LACTULOSE
     Indication: CONSTIPATION
     Dosage: 10 G/15ML SOLUTION
  2. LITHIUM. [Suspect]
     Active Substance: LITHIUM
     Indication: SCHIZOAFFECTIVE DISORDER

REACTIONS (5)
  - Diarrhoea [None]
  - Stab wound [None]
  - Toxicity to various agents [None]
  - Suicide attempt [None]
  - Constipation [None]
